FAERS Safety Report 4608916-8 (Version None)
Quarter: 2005Q1

REPORT INFORMATION
  Report Type: 
  Country: None (occurrence: None)
  Receive Date: 20050309
  Receipt Date: 20050225
  Transmission Date: 20050727
  Serious: Yes (Life-Threatening, Other)
  Sender: FDA-Public Use
  Company Number: 2005037402

PATIENT
  Age: 55 Year
  Sex: Male
  Weight: 60 kg

DRUGS (2)
  1. CLINDAMYCIN PHOSPHATE [Suspect]
     Indication: CELLULITIS
     Dosage: 600 MG (600 MG, DAILY), INTRAVENOUS
     Route: 042
     Dates: start: 20050223, end: 20050223
  2. PIPEMIDIC ACID( PIPEMIDIC ACID) [Concomitant]

REACTIONS (6)
  - BLOOD PRESSURE DECREASED [None]
  - COLD SWEAT [None]
  - CYANOSIS [None]
  - FEELING COLD [None]
  - LOSS OF CONSCIOUSNESS [None]
  - SHOCK [None]
